FAERS Safety Report 5851834-8 (Version None)
Quarter: 2008Q3

REPORT INFORMATION
  Report Type: 
  Country: None (occurrence: None)
  Receive Date: 20080813
  Receipt Date: 20070815
  Transmission Date: 20090109
  Serious: Yes (Other)
  Sender: FDA-Public Use
  Company Number: PHEH2007US11017

PATIENT
  Sex: Female

DRUGS (3)
  1. LOTENSIN [Suspect]
     Indication: HYPERTENSION
  2. CORGARD [Concomitant]
  3. ACETYLSALICYLIC ACID SRT [Concomitant]

REACTIONS (2)
  - SWOLLEN TONGUE [None]
  - URTICARIA [None]
